FAERS Safety Report 23564200 (Version 1)
Quarter: 2024Q1

REPORT INFORMATION
  Report Type: Spontaneous
  Country: FR (occurrence: FR)
  Receive Date: 20240226
  Receipt Date: 20240226
  Transmission Date: 20240409
  Serious: Yes (Other)
  Sender: FDA-Public Use
  Company Number: None

PATIENT
  Age: 42 Year
  Sex: Female

DRUGS (4)
  1. ECONAZOLE [Suspect]
     Active Substance: ECONAZOLE
     Indication: Vulvovaginal pruritus
     Route: 067
     Dates: start: 202206, end: 202206
  2. SERTACONAZOLE NITRATE [Concomitant]
     Active Substance: SERTACONAZOLE NITRATE
     Dosage: MONAZOL 2 PER CENT, CREAM
     Route: 065
  3. IBUPROFEN [Suspect]
     Active Substance: IBUPROFEN
     Indication: Tonsillitis streptococcal
     Dosage: 400 MG, FILM-COATED TABLET
     Route: 048
     Dates: start: 202206, end: 202206
  4. AMOXICILLIN [Suspect]
     Active Substance: AMOXICILLIN
     Indication: Tonsillitis streptococcal
     Route: 048
     Dates: start: 202206, end: 2022

REACTIONS (4)
  - Arthralgia [Recovered/Resolved]
  - Thermal burn [Recovered/Resolved]
  - Erythema [Recovered/Resolved]
  - Rash [Recovered/Resolved]

NARRATIVE: CASE EVENT DATE: 20220601
